FAERS Safety Report 19084317 (Version 2)
Quarter: 2021Q2

REPORT INFORMATION
  Report Type: Spontaneous
  Country: BE (occurrence: BE)
  Receive Date: 20210401
  Receipt Date: 20210409
  Transmission Date: 20210717
  Serious: Yes (Other)
  Sender: FDA-Public Use
  Company Number: BE-ALLERGAN-2113096US

PATIENT
  Sex: Male

DRUGS (9)
  1. ESOMEPRAZOLE. [Concomitant]
     Active Substance: ESOMEPRAZOLE MAGNESIUM
  2. SUSTANON [Concomitant]
     Active Substance: TESTOSTERONE
  3. DUROGESIC [Concomitant]
     Active Substance: FENTANYL
  4. HYDROCORTISONE. [Concomitant]
     Active Substance: HYDROCORTISONE
  5. LITICAN [Concomitant]
     Active Substance: ALIZAPRIDE HYDROCHLORIDE
  6. IMITREX [Concomitant]
     Active Substance: SUMATRIPTAN SUCCINATE
  7. DIAMOX SEQUELS [Concomitant]
     Active Substance: ACETAZOLAMIDE
  8. BOTOX [Suspect]
     Active Substance: ONABOTULINUMTOXINA
     Indication: CLUSTER HEADACHE
     Dosage: UNK UNK, SINGLE
  9. BACLOFEN. [Concomitant]
     Active Substance: BACLOFEN

REACTIONS (3)
  - Off label use [Unknown]
  - Suicidal ideation [Unknown]
  - Pain [Not Recovered/Not Resolved]
